FAERS Safety Report 6912745-X (Version None)
Quarter: 2010Q3

REPORT INFORMATION
  Report Type: 
  Country: None (occurrence: None)
  Receive Date: 20100806
  Receipt Date: 20081114
  Transmission Date: 20110219
  Serious: No
  Sender: FDA-Public Use
  Company Number: US-PFIZER INC-2007093388

PATIENT
  Sex: Female
  Weight: 86.818 kg

DRUGS (1)
  1. DETROL LA [Suspect]
     Indication: URINARY INCONTINENCE
     Route: 048
     Dates: start: 20071001

REACTIONS (8)
  - DRUG INEFFECTIVE [None]
  - EYE DISORDER [None]
  - FATIGUE [None]
  - INFLUENZA LIKE ILLNESS [None]
  - MALAISE [None]
  - MUSCLE CONTRACTURE [None]
  - PAIN [None]
  - UNEVALUABLE EVENT [None]
